FAERS Safety Report 9707017 (Version 3)
Quarter: 2013Q4

REPORT INFORMATION
  Report Type: Spontaneous
  Country: US (occurrence: US)
  Receive Date: 20131125
  Receipt Date: 20131217
  Transmission Date: 20140711
  Serious: No
  Sender: FDA-Public Use
  Company Number: US-PFIZER INC-2013326709

PATIENT
  Age: 41 Year
  Sex: Male
  Weight: 88.44 kg

DRUGS (4)
  1. VIAGRA [Suspect]
     Indication: ERECTILE DYSFUNCTION
     Dosage: 100 MG, AS NEEDED
  2. VIAGRA [Suspect]
     Dosage: 50 MG, AS NEEDED
  3. LISINOPRIL W/HYDROCHLOROTHIAZIDE [Concomitant]
     Indication: HYPERTENSION
     Dosage: (HYDROCHLOROTHIAZIDE 25MG/ LISINOPRIL 20 MG), 1X/DAY
  4. LISINOPRIL [Concomitant]
     Indication: HYPERTENSION
     Dosage: 25 MG, DAILY

REACTIONS (3)
  - Incorrect dose administered [Unknown]
  - Drug dispensing error [Unknown]
  - Drug ineffective [Unknown]
